FAERS Safety Report 21706428 (Version 1)
Quarter: 2022Q4

REPORT INFORMATION
  Report Type: Spontaneous
  Country: US (occurrence: US)
  Receive Date: 20221209
  Receipt Date: 20221209
  Transmission Date: 20230113
  Serious: Yes (Other)
  Sender: FDA-Public Use
  Company Number: US-GSK-US2022GSK182380

PATIENT

DRUGS (5)
  1. ZIDOVUDINE [Suspect]
     Active Substance: ZIDOVUDINE
     Indication: Perinatal HIV infection
     Dosage: UNK
     Route: 048
  2. LAMIVUDINE [Suspect]
     Active Substance: LAMIVUDINE
     Indication: Perinatal HIV infection
     Dosage: UNK
     Route: 048
  3. ABACAVIR [Suspect]
     Active Substance: ABACAVIR
     Indication: Perinatal HIV infection
     Dosage: UNK
     Route: 048
  4. NELFINAVIR [Suspect]
     Active Substance: NELFINAVIR
     Indication: Perinatal HIV infection
     Dosage: UNK
     Route: 048
  5. STAVUDINE [Suspect]
     Active Substance: STAVUDINE
     Indication: Perinatal HIV infection
     Dosage: UNK
     Route: 048

REACTIONS (16)
  - Virologic failure [Recovered/Resolved]
  - Viral mutation identified [Unknown]
  - Pathogen resistance [Unknown]
  - Aversion [Unknown]
  - Nausea [Unknown]
  - Somnolence [Unknown]
  - Immunosuppression [Unknown]
  - Mucocutaneous candidiasis [Unknown]
  - Onychomycosis [Unknown]
  - Varicella [Unknown]
  - Pneumonia [Unknown]
  - Pyelonephritis [Unknown]
  - Asthenia [Unknown]
  - Decreased appetite [Unknown]
  - Weight gain poor [Unknown]
  - Treatment noncompliance [Unknown]
